FAERS Safety Report 8037672-9 (Version None)
Quarter: 2012Q1

REPORT INFORMATION
  Report Type: 
  Country: None (occurrence: None)
  Receive Date: 20120111
  Receipt Date: 20120109
  Transmission Date: 20120608
  Serious: Yes (Hospitalization, Other)
  Sender: FDA-Public Use
  Company Number: US-ABBOTT-11P-163-0869613-00

PATIENT
  Sex: Male
  Weight: 104.42 kg

DRUGS (4)
  1. UNNAMED MEDICATION [Concomitant]
     Indication: HYPERTENSION
  2. HUMIRA [Suspect]
     Indication: PSORIASIS
     Route: 058
     Dates: start: 20060101, end: 20080805
  3. UNNAMED MEDICATION [Concomitant]
  4. HUMIRA [Suspect]

REACTIONS (9)
  - CEREBELLAR HAEMORRHAGE [None]
  - LOSS OF CONSCIOUSNESS [None]
  - AMNESIA [None]
  - NERVOUS SYSTEM DISORDER [None]
  - FATIGUE [None]
  - NAUSEA [None]
  - GAIT DISTURBANCE [None]
  - MOBILITY DECREASED [None]
  - SPEECH DISORDER [None]
